FAERS Safety Report 19847609 (Version 1)
Quarter: 2021Q3

REPORT INFORMATION
  Report Type: Spontaneous
  Country: PT (occurrence: PT)
  Receive Date: 20210917
  Receipt Date: 20210917
  Transmission Date: 20211014
  Serious: Yes (Hospitalization, Other)
  Sender: FDA-Public Use
  Company Number: PT-SAMSUNG BIOEPIS-SB-2021-21735

PATIENT
  Age: 27 Year
  Sex: Female

DRUGS (5)
  1. INFLIXIMAB [Suspect]
     Active Substance: INFLIXIMAB
     Indication: CROHN^S DISEASE
     Dosage: 10 MG/KG, THE INTERVAL TO 6/6 WEEKS
     Route: 042
     Dates: start: 2015
  2. INFLIXIMAB [Suspect]
     Active Substance: INFLIXIMAB
     Route: 065
  3. METHOTREXATE. [Suspect]
     Active Substance: METHOTREXATE
     Dosage: UNKNOWN
     Route: 065
  4. METHOTREXATE. [Suspect]
     Active Substance: METHOTREXATE
     Indication: CROHN^S DISEASE
     Route: 065
  5. MERCAPTOPURINE. [Suspect]
     Active Substance: MERCAPTOPURINE
     Indication: CROHN^S DISEASE
     Dosage: IN COMBINATION WITH INFLXIMAB (UNKNOWN)
     Route: 065

REACTIONS (6)
  - Crohn^s disease [Recovered/Resolved]
  - Product use issue [Unknown]
  - Pseudopolyp [Unknown]
  - Mucosal ulceration [Unknown]
  - Off label use [Unknown]
  - Overdose [Unknown]
